FAERS Safety Report 4330364-9 (Version None)
Quarter: 2004Q1

REPORT INFORMATION
  Report Type: 
  Country: None (occurrence: None)
  Receive Date: 20040329
  Receipt Date: 20040314
  Transmission Date: 20041129
  Serious: Yes (Other)
  Sender: FDA-Public Use
  Company Number: BE-JNJFOC-20040303560

PATIENT
  Age: 6 Year
  Sex: Male

DRUGS (1)
  1. CISAPRIDE (CISAPRIDE) TABLETS [Suspect]
     Indication: GASTROOESOPHAGEAL REFLUX DISEASE
     Dosage: 5 MG, 3 IN 1 DAY, ORAL
     Route: 048
     Dates: start: 20030408, end: 20030610

REACTIONS (1)
  - DRUG INEFFECTIVE [None]
